FAERS Safety Report 6725243-3 (Version None)
Quarter: 2010Q2

REPORT INFORMATION
  Report Type: 
  Country: None (occurrence: None)
  Receive Date: 20100514
  Receipt Date: 20100505
  Transmission Date: 20101027
  Serious: Yes (Other)
  Sender: FDA-Public Use
  Company Number: US-KINGPHARMUSA00001-K201000549

PATIENT
  Sex: Female
  Weight: 47.619 kg

DRUGS (3)
  1. EPIPEN [Suspect]
     Indication: FOOD ALLERGY
     Dosage: 0.3 MG, SINGLE
     Route: 030
     Dates: start: 20100101, end: 20100101
  2. SYNTHROID [Concomitant]
     Dosage: UNK
  3. SIMVASTATIN [Concomitant]
     Dosage: UNK

REACTIONS (2)
  - CONVULSION [None]
  - DYSPHEMIA [None]
